FAERS Safety Report 9787047 (Version 1)
Quarter: 2013Q4

REPORT INFORMATION
  Report Type: Report from Study
  Country: US (occurrence: US)
  Receive Date: 20131227
  Receipt Date: 20131227
  Transmission Date: 20140711
  Serious: Yes (Other)
  Sender: FDA-Public Use
  Company Number: US-ABBVIE-13P-163-1182803-00

PATIENT
  Age: 51 Year
  Sex: Male

DRUGS (6)
  1. HUMIRA [Suspect]
     Indication: PSORIASIS
     Dates: start: 20110805
  2. GENERIC LIPITOR [Concomitant]
     Indication: BLOOD CHOLESTEROL
     Dosage: 1/2 OF THE LOSEST DOSE AVAILABLE
  3. GENERIC SERZONE [Concomitant]
     Indication: DEPRESSION
  4. FINASTERIDE [Concomitant]
     Indication: ALOPECIA
  5. FINASTERIDE [Concomitant]
     Indication: PROPHYLAXIS
  6. CELEBREX [Concomitant]
     Indication: BACK PAIN

REACTIONS (5)
  - Intervertebral disc protrusion [Recovered/Resolved]
  - Cataract operation [Recovered/Resolved]
  - Cataract operation [Recovered/Resolved]
  - Needle issue [Unknown]
  - Injection site haemorrhage [Recovered/Resolved]
